FAERS Safety Report 7951012-2 (Version None)
Quarter: 2011Q4

REPORT INFORMATION
  Report Type: 
  Country: None (occurrence: None)
  Receive Date: 20111123
  Receipt Date: 20111111
  Transmission Date: 20120403
  Serious: Yes (Death)
  Sender: FDA-Public Use
  Company Number: 2011-499

PATIENT
  Age: 47 Year
  Sex: Female

DRUGS (19)
  1. SPIRONOLACTONE [Concomitant]
  2. CALCIUM + VITAMIN D (CALCIUM, COLECALIFEROL) [Concomitant]
  3. STRATTERA [Concomitant]
  4. GABAPENTIN [Concomitant]
  5. LASIX [Concomitant]
  6. CLOZAPINE (FAZACLO) [Suspect]
     Indication: SCHIZOAFFECTIVE DISORDER
     Dosage: 50-400 MG, QD, ORAL
     Route: 048
     Dates: start: 20111010, end: 20111108
  7. ASPIRIN [Concomitant]
  8. BENADRYL [Concomitant]
  9. AMIODARONE HCL [Concomitant]
  10. LISINOPRIL [Concomitant]
  11. ATIVAN [Concomitant]
  12. COREG [Concomitant]
  13. DEPAKOTE [Concomitant]
  14. ZYPREXA [Concomitant]
  15. FOLIC ACID [Concomitant]
  16. COGENTIN [Concomitant]
  17. LEVOTHYROXINE SODIUM [Concomitant]
  18. VENTOLIN [Concomitant]
  19. TOPAMAX [Concomitant]

REACTIONS (1)
  - CARDIAC DISORDER [None]
